FAERS Safety Report 22325722 (Version 3)
Quarter: 2023Q2

REPORT INFORMATION
  Report Type: Spontaneous
  Country: US (occurrence: US)
  Receive Date: 20230516
  Receipt Date: 20230626
  Transmission Date: 20230722
  Serious: Yes (Other)
  Sender: FDA-Public Use
  Company Number: US-BRISTOL-MYERS SQUIBB COMPANY-2023-068205

PATIENT
  Age: 55 Year
  Sex: Female

DRUGS (1)
  1. REVLIMID [Suspect]
     Active Substance: LENALIDOMIDE
     Indication: Plasma cell myeloma
     Dosage: TAKE 1 CAPSULE BY MOUTH EVERY DAY FOR 21 DAYS THEN 7 DAYS OFF
     Route: 048
     Dates: start: 20230405

REACTIONS (9)
  - Headache [Unknown]
  - Pain [Unknown]
  - Fatigue [Unknown]
  - Somnolence [Unknown]
  - Malaise [Unknown]
  - Swelling [Unknown]
  - Eye irritation [Unknown]
  - Eye discharge [Unknown]
  - Muscle spasms [Not Recovered/Not Resolved]
